FAERS Safety Report 7050193-5 (Version None)
Quarter: 2010Q4

REPORT INFORMATION
  Report Type: 
  Country: None (occurrence: None)
  Receive Date: 20101013
  Receipt Date: 20100930
  Transmission Date: 20110411
  Serious: Yes (Life-Threatening, Hospitalization)
  Sender: FDA-Public Use
  Company Number: 2010MA003152

PATIENT
  Age: 40 Year
  Sex: Female

DRUGS (2)
  1. FEVERALL [Suspect]
  2. OXYCODONE HCL [Concomitant]

REACTIONS (13)
  - ABDOMINAL DISTENSION [None]
  - ABDOMINAL PAIN [None]
  - BLOOD PRESSURE DIASTOLIC DECREASED [None]
  - BRAIN OEDEMA [None]
  - DIALYSIS [None]
  - ENCEPHALOPATHY [None]
  - HEART RATE INCREASED [None]
  - HEPATIC FAILURE [None]
  - INTRACRANIAL PRESSURE INCREASED [None]
  - MENTAL STATUS CHANGES [None]
  - NAUSEA [None]
  - OCULAR ICTERUS [None]
  - RENAL FAILURE ACUTE [None]
